FAERS Safety Report 7153105-9 (Version None)
Quarter: 2010Q4

REPORT INFORMATION
  Report Type: 
  Country: None (occurrence: None)
  Receive Date: 20101213
  Receipt Date: 20101130
  Transmission Date: 20110411
  Serious: Yes (Hospitalization)
  Sender: FDA-Public Use
  Company Number: PHHO2010FR18101

PATIENT
  Sex: Male
  Weight: 80 kg

DRUGS (8)
  1. NEORAL [Suspect]
     Indication: RENAL TRANSPLANT
     Dosage: 325 MG, UNK
     Route: 048
     Dates: start: 20100326
  2. CELLCEPT [Suspect]
     Indication: RENAL TRANSPLANT
     Dosage: 1 G, UNK
     Route: 048
     Dates: start: 20100313
  3. BACTRIM [Suspect]
  4. ROVALCYTE [Suspect]
  5. RANITIDINE HCL [Suspect]
  6. APROVEL [Concomitant]
  7. CORTANCYL [Concomitant]
  8. AMLOR [Concomitant]

REACTIONS (8)
  - ABDOMINAL PAIN [None]
  - CYTOMEGALOVIRUS INFECTION [None]
  - DIARRHOEA [None]
  - GENERAL PHYSICAL HEALTH DETERIORATION [None]
  - HYPONATRAEMIA [None]
  - LEUKOPENIA [None]
  - MALAISE [None]
  - PYREXIA [None]
